FAERS Safety Report 4450384-3 (Version None)
Quarter: 2004Q3

REPORT INFORMATION
  Report Type: 
  Country: None (occurrence: None)
  Receive Date: 20040914
  Receipt Date: 20040907
  Transmission Date: 20050211
  Serious: Yes (Hospitalization, Other)
  Sender: FDA-Public Use
  Company Number: FRWYE023308SEP04

PATIENT
  Age: 27 Year
  Sex: Female

DRUGS (1)
  1. MYNOCINE (MINOCYCLINE) [Suspect]
     Indication: ACNE
     Route: 048
     Dates: start: 20040420, end: 20040513

REACTIONS (5)
  - ARTHRALGIA [None]
  - PRURITUS [None]
  - RASH MACULO-PAPULAR [None]
  - TOXIC SKIN ERUPTION [None]
  - URTICARIA [None]
